FAERS Safety Report 20218997 (Version 1)
Quarter: 2021Q4

REPORT INFORMATION
  Report Type: Spontaneous
  Country: US (occurrence: US)
  Receive Date: 20211222
  Receipt Date: 20211222
  Transmission Date: 20220303
  Serious: No
  Sender: FDA-Public Use
  Company Number: US-BIOHAVEN PHARMACEUTICALS-2021BHV01063

PATIENT
  Age: 67 Year
  Sex: Female
  Weight: 52.608 kg

DRUGS (8)
  1. NURTEC ODT [Suspect]
     Active Substance: RIMEGEPANT SULFATE
     Dosage: 75 MG, AS NEEDED?TREATMENT START STOP DATE:08-07-21/22-07-21/15 DAYS?TREATMENT START STOP DATE:03-01
     Route: 048
     Dates: start: 20210103, end: 202105
  2. NURTEC ODT [Suspect]
     Active Substance: RIMEGEPANT SULFATE
     Dosage: 75 MG, EVERY 48 HOURS?TREATMENT START STOP DATE:03-01-21/5-2021/?TREATMENT START STOP DATE:08-07-21/
     Route: 048
     Dates: start: 20210708, end: 20210722
  3. EMGALITY [Suspect]
     Active Substance: GALCANEZUMAB-GNLM
     Dosage: UNK, ONCE?TREATMENT START STOP DATE:03-01-21/5-2021/?TREATMENT START STOP DATE:08-07-21/22-07-21/15
     Dates: start: 202105, end: 202105
  4. NEURONTIN [Concomitant]
     Active Substance: GABAPENTIN
  5. PROTONIX [Concomitant]
     Active Substance: PANTOPRAZOLE SODIUM
     Dosage: UNK, EVERY 48 HOURS?TREATMENT START STOP DATE:03-01-21/5-2021/?TREATMENT START STOP DATE:08-07-21/22
  6. VITAMINS [Concomitant]
     Active Substance: VITAMINS
  7. CELEBREX [Concomitant]
     Active Substance: CELECOXIB
     Dosage: UNK, 1X/WEEK?TREATMENT START STOP DATE:03-01-21/5-2021/?TREATMENT START STOP DATE:08-07-21/22-07-21/
  8. CELEBREX [Concomitant]
     Active Substance: CELECOXIB
     Dosage: UNK, 2X/WEEK?TREATMENT START STOP DATE:08-07-21/22-07-21/15 DAYS?TREATMENT START STOP DATE:03-01-21/

REACTIONS (3)
  - Chest pain [Recovered/Resolved]
  - Dysphonia [Recovered/Resolved]
  - Drug hypersensitivity [Recovered/Resolved]

NARRATIVE: CASE EVENT DATE: 20210101
